FAERS Safety Report 26166779 (Version 1)
Quarter: 2025Q4

REPORT INFORMATION
  Report Type: Spontaneous
  Country: US (occurrence: None)
  Receive Date: 20251217
  Receipt Date: 20251217
  Transmission Date: 20260118
  Serious: No
  Sender: UCB
  Company Number: US-UCBSA-2025058726

PATIENT

DRUGS (4)
  1. BIMZELX [Suspect]
     Active Substance: BIMEKIZUMAB-BKZX
     Indication: Psoriasis
     Dosage: 320 MILLIGRAM, EV 4 WEEKS
  2. ALLEGRA ALLE [Concomitant]
     Indication: Product used for unknown indication
     Dosage: 180 MILLIGRAM
  3. SPIRONOLACTO [Concomitant]
     Indication: Product used for unknown indication
     Dosage: 50 MILLIGRAM
  4. VYVANSE CHE [Concomitant]
     Indication: Product used for unknown indication
     Dosage: 60 MILLIGRAM CHE

REACTIONS (1)
  - Injection site pain [Not Recovered/Not Resolved]
